FAERS Safety Report 4879874-6 (Version None)
Quarter: 2006Q1

REPORT INFORMATION
  Report Type: 
  Country: None (occurrence: None)
  Receive Date: 20060113
  Receipt Date: 20050712
  Transmission Date: 20060701
  Serious: Yes (Death, Hospitalization)
  Sender: FDA-Public Use
  Company Number: US-MERCK-0507USA01668

PATIENT
  Age: 55 Year
  Sex: Male

DRUGS (13)
  1. VIOXX [Suspect]
     Indication: OSTEOARTHRITIS
     Route: 048
     Dates: start: 20011201, end: 20030507
  2. VIOXX [Suspect]
     Route: 048
     Dates: start: 20011201, end: 20030501
  3. VIOXX [Suspect]
     Route: 048
     Dates: start: 20030721, end: 20030722
  4. VIOXX [Suspect]
     Indication: ARTHRALGIA
     Route: 048
     Dates: start: 20011201, end: 20030507
  5. VIOXX [Suspect]
     Route: 048
     Dates: start: 20011201, end: 20030501
  6. VIOXX [Suspect]
     Route: 048
     Dates: start: 20030721, end: 20030722
  7. PACERONE [Concomitant]
     Route: 065
  8. BETAPACE [Concomitant]
     Route: 065
  9. WARFARIN [Concomitant]
     Route: 065
  10. DIOVAN [Concomitant]
     Route: 065
  11. CARTIA XT [Concomitant]
     Route: 065
  12. HYZAAR [Concomitant]
     Route: 065
  13. PIROXICAM [Concomitant]
     Route: 065

REACTIONS (12)
  - ANAEMIA [None]
  - ATRIAL FIBRILLATION [None]
  - BUNDLE BRANCH BLOCK LEFT [None]
  - CARDIAC ARREST [None]
  - CEREBRAL ISCHAEMIA [None]
  - CEREBROVASCULAR ACCIDENT [None]
  - HYPERTENSION [None]
  - OSTEOARTHRITIS [None]
  - PULMONARY EMBOLISM [None]
  - RESPIRATORY FAILURE [None]
  - VENTRICULAR FIBRILLATION [None]
  - VENTRICULAR TACHYCARDIA [None]
